FAERS Safety Report 6686989-9 (Version None)
Quarter: 2010Q2

REPORT INFORMATION
  Report Type: 
  Country: None (occurrence: None)
  Receive Date: 20100419
  Receipt Date: 20100407
  Transmission Date: 20101027
  Serious: Yes (Other)
  Sender: FDA-Public Use
  Company Number: US-PFIZER INC-2010038199

PATIENT
  Sex: Female

DRUGS (3)
  1. NARDIL [Suspect]
     Dosage: UNK
  2. BENADRYL [Concomitant]
     Dosage: UNK
  3. KLONOPIN [Concomitant]
     Dosage: 0.5 MG, 3X/DAY

REACTIONS (5)
  - FALL [None]
  - HAEMANGIOMA [None]
  - HYPERTENSION [None]
  - MIDDLE INSOMNIA [None]
  - PNEUMONIA [None]
